FAERS Safety Report 9181404 (Version 1)
Quarter: 2013Q1

REPORT INFORMATION
  Report Type: Spontaneous
  Country: JP (occurrence: JP)
  Receive Date: 20130322
  Receipt Date: 20130322
  Transmission Date: 20140127
  Serious: Yes (Death)
  Sender: FDA-Public Use
  Company Number: JP-ASTELLAS-2013JP004096

PATIENT
  Age: 71 Year
  Sex: Male

DRUGS (8)
  1. FUNGUARD [Suspect]
     Indication: INFECTIOUS PLEURAL EFFUSION
     Dosage: 200 MG, UNKNOWN/D
     Route: 065
  2. FUNGUARD [Suspect]
     Indication: ASPERGILLUS INFECTION
  3. MEROPENEM [Concomitant]
     Indication: INFECTIOUS PLEURAL EFFUSION
     Dosage: 0.5 G, UNKNOWN/D
     Route: 065
  4. MEROPENEM [Concomitant]
     Indication: ASPERGILLUS INFECTION
  5. AMPHOTERICIN B, LIPOSOME [Concomitant]
     Indication: INFECTIOUS PLEURAL EFFUSION
     Dosage: 4 MG/KG, UNKNOWN/D
     Route: 042
  6. AMPHOTERICIN B, LIPOSOME [Concomitant]
     Indication: ASPERGILLUS INFECTION
  7. CYCLOPHOSPHAMIDE [Concomitant]
     Indication: INTERSTITIAL LUNG DISEASE
     Route: 065
  8. CORTICOSTEROID NOS [Concomitant]
     Indication: INTERSTITIAL LUNG DISEASE
     Route: 065

REACTIONS (3)
  - Drug ineffective [Unknown]
  - Infectious pleural effusion [Fatal]
  - Aspergillus infection [Fatal]
